FAERS Safety Report 13929922 (Version 2)
Quarter: 2018Q3

REPORT INFORMATION
  Report Type: Report from Study
  Country: CO (occurrence: CO)
  Receive Date: 20170901
  Receipt Date: 20180831
  Transmission Date: 20181010
  Serious: Yes (Hospitalization, Other)
  Sender: FDA-Public Use
  Company Number: PHHY2017CO083795

PATIENT
  Sex: Male
  Weight: 38 kg

DRUGS (6)
  1. HYDROXYUREA. [Concomitant]
     Active Substance: HYDROXYUREA
     Indication: PRODUCT USED FOR UNKNOWN INDICATION
     Dosage: 500 MG, UNK
     Route: 065
  2. EXJADE [Suspect]
     Active Substance: DEFERASIROX
     Indication: SICKLE CELL ANAEMIA
     Dosage: 250 MG, QD
     Route: 048
     Dates: start: 20170219
  3. ZINC SULFATE [Concomitant]
     Active Substance: ZINC SULFATE\ZINC SULFATE ANHYDROUS
     Indication: PRODUCT USED FOR UNKNOWN INDICATION
     Dosage: UNK
     Route: 065
  4. FOLIC ACID. [Suspect]
     Active Substance: FOLIC ACID
     Indication: PRODUCT USED FOR UNKNOWN INDICATION
     Dosage: UNK
     Route: 065
  5. PENICILLIN [Concomitant]
     Active Substance: PENICILLIN
     Indication: PRODUCT USED FOR UNKNOWN INDICATION
     Dosage: 10 MG, UNK
     Route: 065
  6. EXJADE [Suspect]
     Active Substance: DEFERASIROX
     Indication: IRON OVERLOAD

REACTIONS (15)
  - Pain [Unknown]
  - Dyspnoea [Unknown]
  - Arthralgia [Unknown]
  - Headache [Unknown]
  - Spleen disorder [Unknown]
  - Chest pain [Unknown]
  - Haemoglobin decreased [Unknown]
  - Disease recurrence [Unknown]
  - Pain in extremity [Unknown]
  - Pyrexia [Unknown]
  - Sickle cell anaemia with crisis [Unknown]
  - Choking [Unknown]
  - Hepatitis [Unknown]
  - Nausea [Unknown]
  - Drug ineffective [Unknown]
